FAERS Safety Report 16681911 (Version 1)
Quarter: 2019Q3

REPORT INFORMATION
  Report Type: Spontaneous
  Country: NO (occurrence: NO)
  Receive Date: 20190808
  Receipt Date: 20190808
  Transmission Date: 20191004
  Serious: Yes (Disabling)
  Sender: FDA-Public Use
  Company Number: NO-HORIZON-PRO-0165-2019

PATIENT
  Age: 19 Year
  Sex: Female

DRUGS (2)
  1. PROCYSBI [Suspect]
     Active Substance: CYSTEAMINE BITARTRATE
     Indication: CYSTINOSIS
  2. METHACRYLIC ACID-ETHYL ACRYLATE COPOLYMER (ETHYL ACRYLATE\METHACRYLIC ACID) [Suspect]
     Active Substance: ETHYL ACRYLATE\METHACRYLIC ACID
     Indication: PRODUCT USED FOR UNKNOWN INDICATION
     Route: 048

REACTIONS (1)
  - Fibrosing colonopathy [Unknown]

NARRATIVE: CASE EVENT DATE: 20190718
